FAERS Safety Report 8113768-8 (Version None)
Quarter: 2012Q1

REPORT INFORMATION
  Report Type: 
  Country: None (occurrence: None)
  Receive Date: 20120203
  Receipt Date: 20120201
  Transmission Date: 20120608
  Serious: Yes (Death, Hospitalization, Other)
  Sender: FDA-Public Use
  Company Number: BR-ABBOTT-08P-020-0445003-00

PATIENT
  Sex: Female
  Weight: 62 kg

DRUGS (20)
  1. FLUOXETINE HYDROCHLORIDE [Concomitant]
     Indication: MENTAL DISORDER
     Route: 048
  2. DEFLAZACORT [Concomitant]
     Indication: ANTIINFLAMMATORY THERAPY
  3. ALENDRONATE SODIUM [Concomitant]
     Indication: RHEUMATOID ARTHRITIS
     Route: 048
  4. OMEPRAZOLE [Concomitant]
     Indication: PROPHYLAXIS AGAINST GASTROINTESTINAL ULCER
     Route: 048
  5. LOSARTAN POTASSIUM AND HYDROCHLOROTHIAZIDE [Concomitant]
     Indication: HYPERTENSION
     Dosage: 100MG + 25 MG
     Route: 048
  6. DULOXETIME HYDROCHLORIDE [Concomitant]
     Indication: MEMORY IMPAIRMENT
     Route: 048
  7. CALCIUM CITRATE W/COLECALCIFEROL [Concomitant]
     Indication: BONE DISORDER
     Route: 048
  8. OSCAL D [Concomitant]
     Indication: RHEUMATOID ARTHRITIS
     Route: 048
  9. CLONAZEPAM [Concomitant]
     Indication: SLEEP DISORDER THERAPY
     Dosage: 0.5 MG OR 0.25 MG
     Route: 048
  10. HUMIRA [Suspect]
     Route: 058
  11. TIMOLOL MALEATE [Concomitant]
     Indication: EYE DISORDER
     Route: 047
  12. LOSARTAN POTASSIUM AND HYDROCHLOROTHIAZIDE [Concomitant]
     Indication: BLOOD PRESSURE MANAGEMENT
     Route: 048
     Dates: start: 20070101
  13. HUMIRA [Suspect]
     Indication: RHEUMATOID ARTHRITIS
     Route: 058
     Dates: start: 20071201
  14. DEFLAZACORT [Concomitant]
     Indication: RHEUMATOID ARTHRITIS
     Route: 048
  15. RISPERIDONE [Concomitant]
     Indication: MENTAL DISORDER
     Route: 048
  16. SERUM + UNKNOWN MEDICATIONS [Concomitant]
     Indication: PRODUCT USED FOR UNKNOWN INDICATION
  17. CITALOPRAM HYDROBROMIDE [Concomitant]
     Indication: MEMORY IMPAIRMENT
     Route: 048
     Dates: start: 20090401
  18. NAPROXEN [Concomitant]
     Indication: ANTIINFLAMMATORY THERAPY
     Route: 048
  19. AMLODIPINE BESYLATE [Concomitant]
     Indication: HYPERTENSION
     Route: 048
  20. ZOLPIDEM [Concomitant]
     Indication: PRODUCT USED FOR UNKNOWN INDICATION

REACTIONS (24)
  - TUBERCULOSIS [None]
  - NEPHROLITHIASIS [None]
  - MEMORY IMPAIRMENT [None]
  - FEMUR FRACTURE [None]
  - LABYRINTHITIS [None]
  - ARTHRALGIA [None]
  - ASTHENIA [None]
  - DEATH [None]
  - FALL [None]
  - THROMBOSIS [None]
  - CEREBROVASCULAR ACCIDENT [None]
  - MOBILITY DECREASED [None]
  - RENAL DISORDER [None]
  - HAEMORRHAGE [None]
  - HALLUCINATION [None]
  - SUICIDAL IDEATION [None]
  - ILL-DEFINED DISORDER [None]
  - URINARY INCONTINENCE [None]
  - VOMITING [None]
  - PULMONARY OEDEMA [None]
  - OEDEMA PERIPHERAL [None]
  - VISUAL IMPAIRMENT [None]
  - PAIN [None]
  - IMMUNODEFICIENCY [None]
